FAERS Safety Report 9727175 (Version 1)
Quarter: 2013Q4

REPORT INFORMATION
  Report Type: Spontaneous
  Country: US (occurrence: US)
  Receive Date: 20131203
  Receipt Date: 20131203
  Transmission Date: 20140711
  Serious: No
  Sender: FDA-Public Use
  Company Number: US-BRISTOL-MYERS SQUIBB COMPANY-19421171

PATIENT
  Age: 59 Year
  Sex: Male
  Weight: 108.84 kg

DRUGS (9)
  1. KOMBIGLYZE XR [Suspect]
     Indication: TYPE 2 DIABETES MELLITUS
     Dosage: 1DF:KOMBIGLYZE XR 2.5MG/1000MG
     Dates: start: 201104
  2. SIMVASTATIN [Concomitant]
  3. TERAZOSIN [Concomitant]
  4. AVAPRO [Concomitant]
  5. LANTUS [Concomitant]
     Dosage: 1DF:30U QHS
  6. APIDRA [Concomitant]
     Dosage: 4-12U BEFORE MEALS
  7. VITAMIN D [Concomitant]
  8. ASPIRIN [Concomitant]
  9. MULTIVITAMIN [Concomitant]

REACTIONS (1)
  - Muscle spasms [Unknown]
